FAERS Safety Report 19449454 (Version 2)
Quarter: 2022Q2

REPORT INFORMATION
  Report Type: Spontaneous
  Country: US (occurrence: US)
  Receive Date: 20210622
  Receipt Date: 20220620
  Transmission Date: 20220721
  Serious: No
  Sender: FDA-Public Use
  Company Number: US-ASTELLAS-2021US021263

PATIENT
  Sex: Female

DRUGS (2)
  1. VESICARE [Suspect]
     Active Substance: SOLIFENACIN SUCCINATE
     Indication: Bladder disorder
     Dosage: 5 MG, ONCE DAILY (3 YEARS AGO TOOK BY MOUTH)
     Route: 048
     Dates: start: 2017
  2. VESICARE [Suspect]
     Active Substance: SOLIFENACIN SUCCINATE
     Dosage: 10 MG, ONCE DAILY (TOOK FOR 6 WEEKS)
     Route: 048
     Dates: start: 20210414, end: 20210529

REACTIONS (5)
  - Throat tightness [Recovered/Resolved]
  - Dry mouth [Recovered/Resolved]
  - Gastrooesophageal reflux disease [Recovered/Resolved]
  - Eructation [Recovered/Resolved]
  - Drug ineffective [Unknown]
